FAERS Safety Report 12793627 (Version 1)
Quarter: 2016Q3

REPORT INFORMATION
  Report Type: Spontaneous
  Country: US (occurrence: US)
  Receive Date: 20160929
  Receipt Date: 20160929
  Transmission Date: 20161109
  Serious: Yes (Hospitalization, Disabling)
  Sender: FDA-Public Use
  Company Number: None

PATIENT
  Age: 83 Year
  Sex: Male
  Weight: 97.07 kg

DRUGS (8)
  1. UROXATRAL [Concomitant]
     Active Substance: ALFUZOSIN HYDROCHLORIDE
  2. FINASTERIDE. [Concomitant]
     Active Substance: FINASTERIDE
  3. ASPRIN [Concomitant]
     Active Substance: ASPIRIN
  4. LOSARTAN. [Concomitant]
     Active Substance: LOSARTAN
  5. ROCEPHIN [Suspect]
     Active Substance: CEFTRIAXONE SODIUM
     Indication: BRONCHITIS
     Dates: start: 20160803, end: 20160805
  6. MULTIPLE VITA [Concomitant]
  7. LEVAQUIN [Suspect]
     Active Substance: LEVOFLOXACIN
  8. OMEGA 3 [Concomitant]
     Active Substance: OMEGA-3 FATTY ACIDS

REACTIONS (4)
  - Pyrexia [None]
  - Stevens-Johnson syndrome [None]
  - Erythema multiforme [None]
  - Peripheral swelling [None]

NARRATIVE: CASE EVENT DATE: 20160731
